FAERS Safety Report 8951109 (Version 1)
Quarter: 2012Q4

REPORT INFORMATION
  Report Type: Spontaneous
  Country: US (occurrence: None)
  Receive Date: 20121129
  Receipt Date: 20121129
  Transmission Date: 20130627
  Serious: Yes (Life-Threatening, Hospitalization)
  Sender: FDA-Public Use
  Company Number: IMP_06088_2012

PATIENT
  Age: 40 Year
  Sex: Female

DRUGS (4)
  1. BACLOFEN [Suspect]
     Dosage: (Not the prescribed amount)
     Route: 048
  2. NABUMETONE [Suspect]
     Dosage: (Not the prescribed amount)
     Route: 048
  3. DIPHENHYDRAMINE [Suspect]
     Dosage: (Not the prescribed amount)
     Route: 048
  4. ALPRAZOLAM [Suspect]
     Dosage: (Not the prescribed amount)
     Route: 048

REACTIONS (6)
  - Overdose [None]
  - Unresponsive to stimuli [None]
  - Pupil fixed [None]
  - Corneal reflex decreased [None]
  - Hypotonia [None]
  - Coma [None]
